FAERS Safety Report 4627757-9 (Version None)
Quarter: 2005Q2

REPORT INFORMATION
  Report Type: 
  Country: None (occurrence: None)
  Receive Date: 20050406
  Receipt Date: 20050301
  Transmission Date: 20051028
  Serious: Yes (Hospitalization)
  Sender: FDA-Public Use
  Company Number: JP-BOEHRINGER INGELHEIM PHARMMACEUTICALS, INC.-2005-BP-03313NB

PATIENT
  Sex: Male
  Weight: 75 kg

DRUGS (6)
  1. MOBIC [Suspect]
     Indication: BACK PAIN
     Route: 048
     Dates: start: 20050218, end: 20050220
  2. TAKEPRON [Suspect]
     Indication: GASTRIC ULCER
     Route: 048
     Dates: start: 20050218, end: 20050220
  3. COLCHICINE [Suspect]
     Indication: GOUT
     Route: 048
     Dates: start: 20050217, end: 20050222
  4. WARFARIN SODIUM [Suspect]
     Indication: PULMONARY EMBOLISM
     Route: 048
     Dates: start: 20050223
  5. HEPARIN [Concomitant]
     Indication: PULMONARY EMBOLISM
     Route: 042
     Dates: start: 20050215
  6. MUCOSTA [Concomitant]
     Indication: GASTRIC ULCER
     Route: 048
     Dates: start: 20050215

REACTIONS (2)
  - ACTIVATED PARTIAL THROMBOPLASTIN TIME PROLONGED [None]
  - HEPATIC FUNCTION ABNORMAL [None]
